FAERS Safety Report 7545517-6 (Version None)
Quarter: 2011Q2

REPORT INFORMATION
  Report Type: 
  Country: None (occurrence: None)
  Receive Date: 20110613
  Receipt Date: 20110613
  Transmission Date: 20111010
  Serious: Yes (Hospitalization)
  Sender: FDA-Public Use
  Company Number: None

PATIENT
  Sex: Female
  Weight: 96.8 kg

DRUGS (3)
  1. CISPLATIN [Suspect]
     Dosage: 75 MG
  2. ERBITUX [Suspect]
     Dosage: 2928 MG
  3. FLUOROURACIL [Suspect]
     Dosage: 8360 MG

REACTIONS (5)
  - SKIN ULCER [None]
  - DERMATITIS [None]
  - PERINEAL ULCERATION [None]
  - DIARRHOEA [None]
  - BLISTER [None]
